FAERS Safety Report 11512963 (Version 2)
Quarter: 2015Q3

REPORT INFORMATION
  Report Type: Spontaneous
  Country: US (occurrence: US)
  Receive Date: 20150903
  Receipt Date: 20150903
  Transmission Date: 20151125
  Serious: No
  Sender: FDA-Public Use
  Company Number: US-ELI_LILLY_AND_COMPANY-US201004001446

PATIENT
  Age: 58 Year
  Sex: Female

DRUGS (13)
  1. HUMALOG [Suspect]
     Active Substance: INSULIN LISPRO
     Dosage: 26 U, DAILY (1/D)
     Dates: start: 2004
  2. HUMALOG [Suspect]
     Active Substance: INSULIN LISPRO
     Dosage: UNK, AS NEEDED
     Dates: start: 2004
  3. HUMALOG [Suspect]
     Active Substance: INSULIN LISPRO
     Dosage: 28 U, EACH EVENING
     Dates: start: 2004
  4. LANTUS [Concomitant]
     Active Substance: INSULIN GLARGINE
  5. HUMALOG [Suspect]
     Active Substance: INSULIN LISPRO
     Dosage: 28 U, EACH EVENING
     Dates: start: 2004
  6. HUMALOG [Suspect]
     Active Substance: INSULIN LISPRO
     Dosage: 28 U, EACH EVENING
     Dates: start: 2004
  7. HUMALOG [Suspect]
     Active Substance: INSULIN LISPRO
     Dosage: 24 U, EACH MORNING
     Dates: start: 2004
  8. HUMALOG [Suspect]
     Active Substance: INSULIN LISPRO
     Dosage: UNK, AS NEEDED
     Dates: start: 2004
  9. HUMALOG [Suspect]
     Active Substance: INSULIN LISPRO
     Dosage: 26 U, DAILY (1/D)
     Dates: start: 2004
  10. HUMALOG [Suspect]
     Active Substance: INSULIN LISPRO
     Dosage: 24 U, EACH MORNING
     Dates: start: 2004
  11. HUMALOG [Suspect]
     Active Substance: INSULIN LISPRO
     Dosage: 26 U, DAILY (1/D)
     Dates: start: 2004
  12. HUMALOG [Suspect]
     Active Substance: INSULIN LISPRO
     Dosage: 24 U, EACH MORNING
     Dates: start: 2004
  13. HUMALOG [Suspect]
     Active Substance: INSULIN LISPRO
     Indication: TYPE 2 DIABETES MELLITUS
     Dosage: UNK, AS NEEDED
     Dates: start: 2004

REACTIONS (5)
  - Drug ineffective [Unknown]
  - Blood glucose increased [Unknown]
  - Blood glucose increased [Unknown]
  - Incorrect dose administered [Unknown]
  - Foreign body [Unknown]

NARRATIVE: CASE EVENT DATE: 20100315
